FAERS Safety Report 7202083-2 (Version None)
Quarter: 2010Q4

REPORT INFORMATION
  Report Type: 
  Country: None (occurrence: None)
  Receive Date: 20101229
  Receipt Date: 20101215
  Transmission Date: 20110411
  Serious: Yes (Other)
  Sender: FDA-Public Use
  Company Number: PHHY2010CA85894

PATIENT
  Sex: Female

DRUGS (2)
  1. CLOZARIL [Suspect]
  2. SEROQUEL [Concomitant]

REACTIONS (3)
  - BLOOD GROWTH HORMONE DECREASED [None]
  - HYPOTHALAMO-PITUITARY DISORDER [None]
  - TREMOR [None]
